FAERS Safety Report 11278500 (Version 1)
Quarter: 2015Q3

REPORT INFORMATION
  Report Type: Spontaneous
  Country: IN (occurrence: IN)
  Receive Date: 20150717
  Receipt Date: 20150717
  Transmission Date: 20151125
  Serious: Yes (Other)
  Sender: FDA-Public Use
  Company Number: IN-AUROBINDO-AUR-APL-2015-05953

PATIENT
  Age: 53 Year
  Sex: Male

DRUGS (1)
  1. FLUOXETINE [Suspect]
     Active Substance: FLUOXETINE\FLUOXETINE HYDROCHLORIDE
     Indication: DEPRESSION
     Dosage: 20 MG, UNK
     Route: 065
     Dates: start: 20130311

REACTIONS (12)
  - Loss of consciousness [Recovering/Resolving]
  - Anxiety [Recovering/Resolving]
  - Tremor [Recovering/Resolving]
  - Gaze palsy [Recovering/Resolving]
  - Somnolence [Recovering/Resolving]
  - Disturbance in social behaviour [Recovering/Resolving]
  - Feeling abnormal [Recovering/Resolving]
  - Sleep disorder [Recovering/Resolving]
  - Seizure [Recovering/Resolving]
  - Dyskinesia [Recovering/Resolving]
  - Foaming at mouth [Recovering/Resolving]
  - Communication disorder [Recovering/Resolving]

NARRATIVE: CASE EVENT DATE: 20140330
